FAERS Safety Report 8682129 (Version 2)
Quarter: 2012Q4

REPORT INFORMATION
  Report Type: 
  Country: US (occurrence: US)
  Receive Date: 20120725
  Receipt Date: 20120913
  Transmission Date: 20130627
  Serious: Yes (Other)
  Sender: FDA-Public Use
  Company Number: US-ELI_LILLY_AND_COMPANY-US201205010649

PATIENT
  Age: 55 Year
  Sex: Male
  Weight: 88.89 kg

DRUGS (1)
  1. CIALIS [Suspect]
     Indication: ERECTILE DYSFUNCTION
     Dosage: 20 mg, prn
     Dates: start: 20120227, end: 20120228

REACTIONS (4)
  - Deafness [Recovered/Resolved]
  - Inflammation [Recovered/Resolved]
  - Myofascial pain syndrome [None]
  - Stress [None]
